FAERS Safety Report 6642970-7 (Version None)
Quarter: 2010Q1

REPORT INFORMATION
  Report Type: 
  Country: None (occurrence: None)
  Receive Date: 20100319
  Receipt Date: 20100312
  Transmission Date: 20100710
  Serious: Yes (Other)
  Sender: FDA-Public Use
  Company Number: A0700015A

PATIENT
  Age: 51 Year
  Sex: Female
  Weight: 65.5 kg

DRUGS (6)
  1. ADVAIR DISKUS 100/50 [Suspect]
     Indication: ASTHMA
     Route: 055
     Dates: start: 20030901, end: 20070101
  2. ALLEGRA [Concomitant]
  3. ZOLOFT [Concomitant]
  4. FLOVENT [Concomitant]
     Indication: DRUG USE FOR UNKNOWN INDICATION
     Dates: start: 20030501
  5. SEREVENT [Concomitant]
     Indication: ASTHMA
     Route: 055
  6. FLONASE [Concomitant]
     Indication: DRUG USE FOR UNKNOWN INDICATION
     Route: 045
     Dates: end: 20070101

REACTIONS (2)
  - CATARACT SUBCAPSULAR [None]
  - OPTIC NEUROPATHY [None]
